FAERS Safety Report 6231239-0 (Version None)
Quarter: 2009Q2

REPORT INFORMATION
  Report Type: 
  Country: None (occurrence: None)
  Receive Date: 20090616
  Receipt Date: 20090609
  Transmission Date: 20091009
  Serious: Yes (Hospitalization)
  Sender: FDA-Public Use
  Company Number: US-EISAI INC.-E2020-03809-SPO-US

PATIENT
  Age: 97 Year
  Sex: Female

DRUGS (7)
  1. ARICEPT [Suspect]
     Indication: DEMENTIA
     Dates: end: 20080101
  2. ARICEPT [Suspect]
     Route: 048
  3. ARICEPT [Suspect]
     Route: 048
     Dates: end: 20090101
  4. ARICEPT [Suspect]
     Route: 048
     Dates: start: 20090101
  5. NAMENDA [Suspect]
     Indication: DEMENTIA
     Dosage: UNKNOWN
     Route: 048
  6. ALLEGRA [Suspect]
     Indication: DRUG USE FOR UNKNOWN INDICATION
     Dosage: UNKNOWN
     Dates: start: 20080101
  7. EXELON [Concomitant]
     Dates: start: 20090101, end: 20090101

REACTIONS (7)
  - DISORIENTATION [None]
  - DIZZINESS [None]
  - HALLUCINATION [None]
  - MUSCULAR WEAKNESS [None]
  - SCREAMING [None]
  - TREMOR [None]
  - WITHDRAWAL SYNDROME [None]
